FAERS Safety Report 16403552 (Version 1)
Quarter: 2019Q2

REPORT INFORMATION
  Report Type: Spontaneous
  Country: IT (occurrence: IT)
  Receive Date: 20190607
  Receipt Date: 20190607
  Transmission Date: 20190711
  Serious: Yes (Other)
  Sender: FDA-Public Use
  Company Number: IT-AUROBINDO-AUR-APL-2019-031588

PATIENT

DRUGS (4)
  1. EFAVIRENZ. [Suspect]
     Active Substance: EFAVIRENZ
     Indication: HIV INFECTION
     Dosage: 600 MILLIGRAM
     Route: 065
  2. ORLISTAT. [Interacting]
     Active Substance: ORLISTAT
     Indication: HIV INFECTION
     Dosage: 180 MILLIGRAM, DAILY (60 MILLIGRAM, TID)
     Route: 065
  3. EMTRICITABINE [Interacting]
     Active Substance: EMTRICITABINE
     Indication: HIV INFECTION
     Dosage: 200 MILLIGRAM
     Route: 065
  4. TENOFOVIR DISOPROXIL [Interacting]
     Active Substance: TENOFOVIR DISOPROXIL
     Indication: HIV INFECTION
     Dosage: 245 MILLIGRAM
     Route: 065

REACTIONS (2)
  - Drug interaction [Unknown]
  - Virologic failure [Unknown]
